FAERS Safety Report 22591209 (Version 1)
Quarter: 2023Q2

REPORT INFORMATION
  Report Type: Spontaneous
  Country: IE (occurrence: IE)
  Receive Date: 20230612
  Receipt Date: 20230612
  Transmission Date: 20230721
  Serious: Yes (Hospitalization)
  Sender: FDA-Public Use
  Company Number: IE-Eisai Medical Research-EC-2023-141789

PATIENT
  Age: 72 Year
  Sex: Female
  Weight: 87.2 kg

DRUGS (1)
  1. LENVIMA [Suspect]
     Active Substance: LENVATINIB
     Indication: Endometrial cancer metastatic
     Route: 048
     Dates: start: 20230331, end: 20230505

REACTIONS (2)
  - Immune-mediated enterocolitis [Unknown]
  - Nausea [Unknown]

NARRATIVE: CASE EVENT DATE: 20230101
